FAERS Safety Report 23538772 (Version 1)
Quarter: 2024Q1

REPORT INFORMATION
  Report Type: Spontaneous
  Country: US (occurrence: US)
  Receive Date: 20240219
  Receipt Date: 20240219
  Transmission Date: 20240410
  Serious: No
  Sender: FDA-Public Use
  Company Number: US-CTI BIOPHARMA-2022US04362

PATIENT

DRUGS (3)
  1. VONJO [Suspect]
     Active Substance: PACRITINIB
     Indication: Myelofibrosis
     Dosage: 100 MILLIGRAM, BID
     Route: 048
     Dates: start: 20220715
  2. GLIMEPIRIDE [Concomitant]
     Active Substance: GLIMEPIRIDE
     Dosage: 2 MG, QD
  3. LEVEMIR [Concomitant]
     Active Substance: INSULIN DETEMIR
     Dosage: 20 UNK

REACTIONS (1)
  - Biopsy [Unknown]

NARRATIVE: CASE EVENT DATE: 20220701
